FAERS Safety Report 8965512 (Version 1)
Quarter: 2012Q4

REPORT INFORMATION
  Report Type: Spontaneous
  Country: US (occurrence: None)
  Receive Date: 20121212
  Receipt Date: 20121212
  Transmission Date: 20130627
  Serious: No
  Sender: FDA-Public Use
  Company Number: None

PATIENT
  Sex: Male
  Weight: 45.6 kg

DRUGS (6)
  1. ANTITHYMOCYTE GLOBULIN [Suspect]
     Indication: BONE MARROW TRANSPLANT
  2. BUSULFAN [Suspect]
  3. CYCLOPHOSPHAMIDE [Suspect]
  4. CYCLOSPORINE [Suspect]
  5. METHOTREXATE [Suspect]
  6. TACROLIMUS [Suspect]

REACTIONS (5)
  - Abdominal pain [None]
  - Pleural effusion [None]
  - Haematochezia [None]
  - Respiratory disorder [None]
  - Diarrhoea [None]
